FAERS Safety Report 7790686-6 (Version None)
Quarter: 2011Q3

REPORT INFORMATION
  Report Type: 
  Country: None (occurrence: None)
  Receive Date: 20110930
  Receipt Date: 20110927
  Transmission Date: 20111222
  Serious: Yes (Hospitalization, Other)
  Sender: FDA-Public Use
  Company Number: PHHY2011US67827

PATIENT
  Sex: Male

DRUGS (1)
  1. EXJADE [Suspect]
     Indication: SICKLE CELL ANAEMIA
     Dosage: 1500 MG, QD
     Route: 048

REACTIONS (5)
  - SICKLE CELL ANAEMIA WITH CRISIS [None]
  - CONFUSIONAL STATE [None]
  - DYSARTHRIA [None]
  - ACUTE CHEST SYNDROME [None]
  - PAIN [None]
